FAERS Safety Report 8333141-7 (Version None)
Quarter: 2012Q2

REPORT INFORMATION
  Report Type: 
  Country: None (occurrence: None)
  Receive Date: 20120503
  Receipt Date: 20120426
  Transmission Date: 20120825
  Serious: Yes (Death)
  Sender: FDA-Public Use
  Company Number: DE-PFIZER INC-2012103361

PATIENT
  Age: 18 Year
  Sex: Male

DRUGS (1)
  1. TYGACIL [Suspect]
     Dosage: 50 MG, 2X/DAY

REACTIONS (1)
  - DEATH [None]
